APPROVED DRUG PRODUCT: ATORVASTATIN CALCIUM
Active Ingredient: ATORVASTATIN CALCIUM
Strength: EQ 40MG BASE
Dosage Form/Route: TABLET;ORAL
Application: A205945 | Product #003 | TE Code: AB
Applicant: MICRO LABS LTD INDIA
Approved: Nov 7, 2019 | RLD: No | RS: No | Type: RX